FAERS Safety Report 5307585-1 (Version None)
Quarter: 2007Q2

REPORT INFORMATION
  Report Type: 
  Country: None (occurrence: None)
  Receive Date: 20070425
  Receipt Date: 20070413
  Transmission Date: 20071010
  Serious: Yes (Other)
  Sender: FDA-Public Use
  Company Number: NZ-PFIZER INC-2007030845

PATIENT
  Sex: Male

DRUGS (3)
  1. SOLU-MEDROL [Suspect]
     Indication: DIPLOPIA
     Route: 042
     Dates: start: 20030301
  2. SOLU-MEDROL [Suspect]
     Indication: NEUROPATHY
  3. INSULIN [Concomitant]

REACTIONS (4)
  - ABASIA [None]
  - CATARACT [None]
  - OVERDOSE [None]
  - VOMITING [None]
